FAERS Safety Report 8623312-4 (Version None)
Quarter: 2012Q3

REPORT INFORMATION
  Report Type: 
  Country: None (occurrence: None)
  Receive Date: 20120827
  Receipt Date: 20120823
  Transmission Date: 20120928
  Serious: Yes (Death)
  Sender: FDA-Public Use
  Company Number: PHHY2012US072610

PATIENT
  Age: 43 Year
  Sex: Male

DRUGS (1)
  1. CYCLOSPORINE [Suspect]
     Indication: LUNG TRANSPLANT

REACTIONS (2)
  - HEPATIC ENZYME INCREASED [None]
  - PNEUMONIA [None]
